FAERS Safety Report 17744610 (Version 2)
Quarter: 2020Q2

REPORT INFORMATION
  Report Type: Spontaneous
  Country: US (occurrence: US)
  Receive Date: 20200505
  Receipt Date: 20200609
  Transmission Date: 20200714
  Serious: No
  Sender: FDA-Public Use
  Company Number: US-MYLANLABS-2020M1041959

PATIENT
  Age: 67 Year
  Sex: Female
  Weight: 64 kg

DRUGS (1)
  1. ESTRADIOL VAGINAL CREAM USP [Suspect]
     Active Substance: ESTRADIOL
     Indication: BLADDER OPERATION
     Dosage: 1 GRAM, 3XW
     Route: 067
     Dates: start: 20191126, end: 20200422

REACTIONS (6)
  - Vision blurred [Recovering/Resolving]
  - Product dose omission [Recovering/Resolving]
  - Application site pain [Recovering/Resolving]
  - Abdominal distension [Recovering/Resolving]
  - Headache [Recovering/Resolving]
  - Application site hypersensitivity [Unknown]

NARRATIVE: CASE EVENT DATE: 20191126
